FAERS Safety Report 9063707 (Version 1)
Quarter: 2013Q1

REPORT INFORMATION
  Report Type: Report from Study
  Country: US (occurrence: US)
  Receive Date: 20130131
  Receipt Date: 20130131
  Transmission Date: 20140127
  Serious: No
  Sender: FDA-Public Use
  Company Number: US-ABBOTT-12P-163-0991935-00

PATIENT
  Age: 54 None
  Sex: Female

DRUGS (8)
  1. HUMIRA [Suspect]
     Indication: PSORIATIC ARTHROPATHY
     Route: 058
     Dates: start: 201209
  2. HUMIRA [Suspect]
     Indication: PSORIASIS
  3. NEXIUM DR [Concomitant]
     Indication: GASTROOESOPHAGEAL REFLUX DISEASE
     Dosage: EVERY OTHER DAY
  4. CLOBETASOL PROPIONATE TOPICAL CREAM [Concomitant]
     Indication: PSORIASIS
     Dosage: 0.05 %
  5. FLONASE [Concomitant]
     Indication: SINUS DISORDER
     Dosage: ONE SPRAY TWICE A DAY EACH NOSTRIL
  6. FISH OIL NATURE MADE [Concomitant]
  7. DAILY MULTIPLE VITAMIN [Concomitant]
  8. CITRACAL+D CAPLET [Concomitant]

REACTIONS (9)
  - Asthenia [Unknown]
  - Sinus headache [Not Recovered/Not Resolved]
  - Dizziness [Unknown]
  - Fatigue [Not Recovered/Not Resolved]
  - Cough [Unknown]
  - Parosmia [Not Recovered/Not Resolved]
  - Eye pain [Not Recovered/Not Resolved]
  - Skin tightness [Not Recovered/Not Resolved]
  - Anxiety [Unknown]
